FAERS Safety Report 4776812-1 (Version None)
Quarter: 2005Q3

REPORT INFORMATION
  Report Type: 
  Country: None (occurrence: None)
  Receive Date: 20050923
  Receipt Date: 20050914
  Transmission Date: 20060218
  Serious: Yes (Hospitalization, Disabling, Other)
  Sender: FDA-Public Use
  Company Number: 200513269EU

PATIENT
  Age: 41 Year
  Sex: Female

DRUGS (12)
  1. HYDROCORTISONE [Suspect]
     Indication: COLITIS ULCERATIVE
     Route: 051
  2. PREDNISOLONE [Suspect]
     Indication: COLITIS ULCERATIVE
     Route: 054
  3. METHYLPREDNISOLONE [Suspect]
     Indication: COLITIS ULCERATIVE
     Route: 051
  4. ASACOL [Concomitant]
     Indication: COLITIS ULCERATIVE
     Dates: start: 20050627, end: 20050824
  5. FUROSEMIDE [Concomitant]
     Indication: DRUG USE FOR UNKNOWN INDICATION
  6. AZATHIOPRINE [Concomitant]
     Indication: COLITIS ULCERATIVE
     Dates: start: 20050714, end: 20050828
  7. BUSCOPAN [Concomitant]
     Indication: DRUG USE FOR UNKNOWN INDICATION
  8. CYCLOSPORINE [Concomitant]
     Indication: COLITIS ULCERATIVE
     Dates: start: 20050707, end: 20050804
  9. INFLIXIMAB [Concomitant]
     Indication: DRUG USE FOR UNKNOWN INDICATION
     Dates: start: 20050708
  10. LANSOPRAZOLE [Concomitant]
     Indication: DRUG USE FOR UNKNOWN INDICATION
  11. ALENDRONATE [Concomitant]
     Indication: OSTEOPOROSIS PROPHYLAXIS
  12. ADCAL-D3 [Concomitant]
     Indication: OSTEOPOROSIS PROPHYLAXIS

REACTIONS (2)
  - ASEPTIC NECROSIS BONE [None]
  - NECROSIS [None]
